FAERS Safety Report 26005591 (Version 1)
Quarter: 2025Q4

REPORT INFORMATION
  Report Type: Spontaneous
  Country: EU (occurrence: EU)
  Receive Date: 20251106
  Receipt Date: 20251106
  Transmission Date: 20260118
  Serious: Yes (Other)
  Sender: AUROBINDO
  Company Number: EU-SANDOZ-SDZ2025PL078231

PATIENT
  Age: 77 Year
  Sex: Male

DRUGS (4)
  1. CARBOPLATIN [Suspect]
     Active Substance: CARBOPLATIN
     Indication: Product used for unknown indication
     Dosage: UNK
     Route: 065
     Dates: start: 202409, end: 202502
  2. DOCETAXEL [Suspect]
     Active Substance: DOCETAXEL
     Indication: Product used for unknown indication
     Dosage: UNK
     Route: 065
     Dates: start: 20230904
  3. CABAZITAXEL [Suspect]
     Active Substance: CABAZITAXEL
     Indication: Product used for unknown indication
     Dosage: UNK
     Route: 065
     Dates: start: 202311, end: 202404
  4. ENZALUTAMIDE [Suspect]
     Active Substance: ENZALUTAMIDE
     Indication: Product used for unknown indication
     Dosage: UNK
     Route: 065
     Dates: start: 2020

REACTIONS (4)
  - Metastases to bone [Unknown]
  - Metastases to lymph nodes [Unknown]
  - Prostate cancer [Unknown]
  - Metastases to liver [Unknown]
